FAERS Safety Report 5212060-9 (Version None)
Quarter: 2007Q1

REPORT INFORMATION
  Report Type: 
  Country: None (occurrence: None)
  Receive Date: 20070118
  Receipt Date: 20070108
  Transmission Date: 20070707
  Serious: Yes (Other)
  Sender: FDA-Public Use
  Company Number: PHNU2006DE00821

PATIENT
  Age: 71 Year
  Sex: Male
  Weight: 86 kg

DRUGS (8)
  1. ZOMETA [Suspect]
     Dosage: 4 MG, UNK
     Route: 042
     Dates: start: 20030715, end: 20051101
  2. ZOMETA [Suspect]
     Dosage: 4 MG, UNK
     Route: 042
     Dates: start: 20060101
  3. DOCETAXEL [Concomitant]
     Dosage: 70 MG/M2, UNK
     Dates: start: 20050301, end: 20050701
  4. ESTRAMUSTINE [Concomitant]
     Dosage: 1 DF, BID
     Route: 065
     Dates: start: 20050301, end: 20050701
  5. DEXAMETHASONE [Concomitant]
     Dosage: 8 MG, BID
     Route: 065
     Dates: start: 20050301, end: 20050701
  6. MITOXANTRONE [Concomitant]
     Dosage: 12 MG/M2, UNK
     Route: 042
     Dates: start: 20051201, end: 20060601
  7. PREDNISOLONE [Concomitant]
     Dosage: 5 MG, BID
     Route: 048
     Dates: start: 20061101
  8. RADIOTHERAPY [Concomitant]
     Indication: RADIOTHERAPY TO BONE
     Route: 065
     Dates: start: 20030601, end: 20030701

REACTIONS (4)
  - BIOPSY SITE UNSPECIFIED ABNORMAL [None]
  - DENTAL TREATMENT [None]
  - OSTEOMYELITIS [None]
  - WOUND [None]
